FAERS Safety Report 13994129 (Version 1)
Quarter: 2017Q3

REPORT INFORMATION
  Report Type: Not Available
  Country: US (occurrence: US)
  Receive Date: 20170920
  Receipt Date: 20170920
  Transmission Date: 20171128
  Serious: No
  Sender: FDA-Public Use
  Company Number: US-NEUROCRINE BIOSCIENCES INC.-2017NBI00571

PATIENT
  Age: 67 Year
  Sex: Female

DRUGS (10)
  1. INGREZZA [Suspect]
     Active Substance: VALBENAZINE
     Indication: PRODUCT USED FOR UNKNOWN INDICATION
     Route: 048
     Dates: start: 20170706, end: 201707
  2. LOVASTATIN. [Concomitant]
     Active Substance: LOVASTATIN
  3. DONEPEZIL. [Concomitant]
     Active Substance: DONEPEZIL
  4. CLONAZEPAM. [Concomitant]
     Active Substance: CLONAZEPAM
  5. NYSTATIN. [Concomitant]
     Active Substance: NYSTATIN
  6. FENOFIBRATE. [Concomitant]
     Active Substance: FENOFIBRATE
  7. ABILIFY [Concomitant]
     Active Substance: ARIPIPRAZOLE
  8. ASPIRIN. [Concomitant]
     Active Substance: ASPIRIN
  9. PROPANOLOL [Concomitant]
     Active Substance: PROPRANOLOL HYDROCHLORIDE
  10. FLUOXETINE [Concomitant]
     Active Substance: FLUOXETINE HYDROCHLORIDE

REACTIONS (1)
  - Dyskinesia [Recovered/Resolved]

NARRATIVE: CASE EVENT DATE: 20170710
